FAERS Safety Report 17730082 (Version 3)
Quarter: 2023Q4

REPORT INFORMATION
  Report Type: Spontaneous
  Country: US (occurrence: None)
  Receive Date: 20200430
  Receipt Date: 20231006
  Transmission Date: 20240109
  Serious: Yes (Hospitalization, Other)
  Sender: FDA-Public Use
  Company Number: 2020SE54856

PATIENT
  Sex: Male
  Weight: 108 kg

DRUGS (90)
  1. NEXIUM [Suspect]
     Active Substance: ESOMEPRAZOLE MAGNESIUM
     Indication: Gastrooesophageal reflux disease
     Route: 048
     Dates: start: 200001, end: 200512
  2. NEXIUM [Suspect]
     Active Substance: ESOMEPRAZOLE MAGNESIUM
     Indication: Ulcer
     Route: 048
     Dates: start: 200001, end: 200512
  3. NEXIUM [Suspect]
     Active Substance: ESOMEPRAZOLE MAGNESIUM
     Indication: Gastrooesophageal reflux disease
     Dosage: GENERIC
     Route: 065
     Dates: start: 2006
  4. NEXIUM [Suspect]
     Active Substance: ESOMEPRAZOLE MAGNESIUM
     Indication: Ulcer
     Dosage: GENERIC
     Route: 065
     Dates: start: 2006
  5. NEXIUM [Suspect]
     Active Substance: ESOMEPRAZOLE MAGNESIUM
     Indication: Gastrooesophageal reflux disease
     Route: 048
     Dates: start: 2006
  6. NEXIUM [Suspect]
     Active Substance: ESOMEPRAZOLE MAGNESIUM
     Indication: Ulcer
     Route: 048
     Dates: start: 2006
  7. NEXIUM [Suspect]
     Active Substance: ESOMEPRAZOLE MAGNESIUM
     Indication: Gastrooesophageal reflux disease
     Dosage: GENERIC
     Route: 065
     Dates: start: 20140812, end: 20141105
  8. NEXIUM [Suspect]
     Active Substance: ESOMEPRAZOLE MAGNESIUM
     Indication: Ulcer
     Dosage: GENERIC
     Route: 065
     Dates: start: 20140812, end: 20141105
  9. NEXIUM [Suspect]
     Active Substance: ESOMEPRAZOLE MAGNESIUM
     Indication: Gastrooesophageal reflux disease
     Route: 048
     Dates: start: 20120604, end: 20120704
  10. NEXIUM [Suspect]
     Active Substance: ESOMEPRAZOLE MAGNESIUM
     Indication: Ulcer
     Route: 048
     Dates: start: 20120604, end: 20120704
  11. NEXIUM [Suspect]
     Active Substance: ESOMEPRAZOLE MAGNESIUM
     Indication: Gastrooesophageal reflux disease
     Route: 048
     Dates: start: 20121029, end: 20121128
  12. NEXIUM [Suspect]
     Active Substance: ESOMEPRAZOLE MAGNESIUM
     Indication: Ulcer
     Route: 048
     Dates: start: 20121029, end: 20121128
  13. NEXIUM [Suspect]
     Active Substance: ESOMEPRAZOLE MAGNESIUM
     Indication: Gastrooesophageal reflux disease
     Route: 048
     Dates: start: 20140812, end: 20141205
  14. NEXIUM [Suspect]
     Active Substance: ESOMEPRAZOLE MAGNESIUM
     Indication: Ulcer
     Route: 048
     Dates: start: 20140812, end: 20141205
  15. NEXIUM 24HR [Suspect]
     Active Substance: ESOMEPRAZOLE MAGNESIUM
     Route: 048
  16. PRILOSEC [Suspect]
     Active Substance: OMEPRAZOLE MAGNESIUM
     Indication: Ulcer
     Route: 048
     Dates: start: 200001, end: 200512
  17. PRILOSEC [Suspect]
     Active Substance: OMEPRAZOLE MAGNESIUM
     Indication: Gastrooesophageal reflux disease
     Route: 048
     Dates: start: 200001, end: 200512
  18. PRILOSEC [Suspect]
     Active Substance: OMEPRAZOLE MAGNESIUM
     Indication: Ulcer
     Dosage: GENERIC
     Route: 065
     Dates: start: 2004, end: 2020
  19. PRILOSEC [Suspect]
     Active Substance: OMEPRAZOLE MAGNESIUM
     Indication: Gastrooesophageal reflux disease
     Dosage: GENERIC
     Route: 065
     Dates: start: 2004, end: 2020
  20. PRILOSEC [Suspect]
     Active Substance: OMEPRAZOLE MAGNESIUM
     Indication: Ulcer
     Dosage: GENERIC
     Route: 065
     Dates: start: 20160411
  21. PRILOSEC [Suspect]
     Active Substance: OMEPRAZOLE MAGNESIUM
     Indication: Gastrooesophageal reflux disease
     Dosage: GENERIC
     Route: 065
     Dates: start: 20160411
  22. PRILOSEC OTC [Suspect]
     Active Substance: OMEPRAZOLE MAGNESIUM
     Route: 048
     Dates: start: 200001, end: 200512
  23. PREVACID [Suspect]
     Active Substance: LANSOPRAZOLE
     Indication: Gastrooesophageal reflux disease
     Route: 065
     Dates: start: 200001, end: 200512
  24. PREVACID [Suspect]
     Active Substance: LANSOPRAZOLE
     Indication: Ulcer
     Route: 065
     Dates: start: 200001, end: 200512
  25. PREVACID [Suspect]
     Active Substance: LANSOPRAZOLE
     Indication: Gastrooesophageal reflux disease
     Dosage: GENERIC
     Route: 065
     Dates: start: 2004, end: 2005
  26. PREVACID [Suspect]
     Active Substance: LANSOPRAZOLE
     Indication: Ulcer
     Dosage: GENERIC
     Route: 065
     Dates: start: 2004, end: 2005
  27. PREVACID [Suspect]
     Active Substance: LANSOPRAZOLE
     Indication: Gastrooesophageal reflux disease
     Dosage: GENERIC
     Route: 065
     Dates: start: 20130713
  28. PREVACID [Suspect]
     Active Substance: LANSOPRAZOLE
     Indication: Ulcer
     Dosage: GENERIC
     Route: 065
     Dates: start: 20130713
  29. PREVACID [Suspect]
     Active Substance: LANSOPRAZOLE
     Indication: Gastrooesophageal reflux disease
     Dosage: 30.0MG UNKNOWN
     Route: 065
     Dates: start: 20140825, end: 20140924
  30. PREVACID [Suspect]
     Active Substance: LANSOPRAZOLE
     Indication: Ulcer
     Dosage: 30.0MG UNKNOWN
     Route: 065
     Dates: start: 20140825, end: 20140924
  31. PREVACID 24 HR [Suspect]
     Active Substance: LANSOPRAZOLE
     Indication: Gastrooesophageal reflux disease
     Route: 065
     Dates: start: 20160427
  32. PREVACID 24 HR [Suspect]
     Active Substance: LANSOPRAZOLE
     Indication: Ulcer
     Route: 065
     Dates: start: 20160427
  33. PREVACID IV [Suspect]
     Active Substance: LANSOPRAZOLE
     Route: 065
     Dates: start: 200001, end: 200512
  34. PREVACID IV [Suspect]
     Active Substance: LANSOPRAZOLE
     Route: 065
     Dates: start: 20160427
  35. PROTONIX [Suspect]
     Active Substance: PANTOPRAZOLE SODIUM
     Indication: Gastrooesophageal reflux disease
     Route: 065
     Dates: start: 20090516, end: 20090803
  36. PROTONIX [Suspect]
     Active Substance: PANTOPRAZOLE SODIUM
     Indication: Ulcer
     Route: 065
     Dates: start: 20090516, end: 20090803
  37. PROTONIX [Suspect]
     Active Substance: PANTOPRAZOLE SODIUM
     Indication: Gastrooesophageal reflux disease
     Route: 065
     Dates: start: 2006
  38. PROTONIX [Suspect]
     Active Substance: PANTOPRAZOLE SODIUM
     Indication: Ulcer
     Route: 065
     Dates: start: 2006
  39. PROTONIX [Suspect]
     Active Substance: PANTOPRAZOLE SODIUM
     Indication: Gastrooesophageal reflux disease
     Dosage: GENERIC
     Route: 065
     Dates: start: 2006
  40. PROTONIX [Suspect]
     Active Substance: PANTOPRAZOLE SODIUM
     Indication: Ulcer
     Dosage: GENERIC
     Route: 065
     Dates: start: 2006
  41. MULTI-VITAMIN [Concomitant]
     Active Substance: .ALPHA.-TOCOPHEROL ACETATE, DL-\ASCORBIC ACID\CYANOCOBALAMIN\FLUORIDE ION\FOLIC ACID\NIACIN\PYRIDOXI
     Indication: Infection
     Route: 065
     Dates: start: 2005
  42. IRON [Concomitant]
     Active Substance: IRON
     Indication: Blood iron decreased
     Route: 065
     Dates: start: 2017
  43. SODIUM BI CARB [Concomitant]
     Indication: Blood disorder
     Route: 065
     Dates: start: 2017
  44. MAGNESIUM [Concomitant]
     Active Substance: MAGNESIUM
     Indication: Migraine
     Route: 065
     Dates: start: 2013
  45. FAMOTIDINE [Concomitant]
     Active Substance: FAMOTIDINE
     Route: 065
     Dates: start: 20060510, end: 20060614
  46. ZANTAC [Concomitant]
     Active Substance: RANITIDINE HYDROCHLORIDE
     Route: 065
     Dates: start: 2006
  47. TUMS [Concomitant]
     Active Substance: CALCIUM CARBONATE
     Route: 065
     Dates: start: 2000, end: 2005
  48. ALKA-SELTZER [Concomitant]
     Active Substance: ANHYDROUS CITRIC ACID\ASPIRIN\SODIUM BICARBONATE
     Route: 065
     Dates: start: 2000, end: 2005
  49. PEPTO-BISMOL [Concomitant]
     Active Substance: BISMUTH SUBSALICYLATE
     Route: 065
     Dates: start: 2000, end: 2005
  50. ROLAIDS [Concomitant]
     Active Substance: CALCIUM CARBONATE\MAGNESIUM HYDROXIDE
     Route: 065
     Dates: start: 2000, end: 2005
  51. MYLANTA [Concomitant]
     Active Substance: ALUMINUM HYDROXIDE\DIMETHICONE\MAGNESIUM HYDROXIDE
     Route: 065
     Dates: start: 2000, end: 2005
  52. MAALOX ANTACID [Concomitant]
     Active Substance: ALUMINUM HYDROXIDE\DIMETHICONE\MAGNESIUM HYDROXIDE
     Dates: start: 2000, end: 2005
  53. ALLOPURINOL [Concomitant]
     Active Substance: ALLOPURINOL
     Indication: Gout
     Dates: start: 20160408, end: 20200106
  54. ALLOPURINOL [Concomitant]
     Active Substance: ALLOPURINOL
     Indication: Nephrolithiasis
     Dates: start: 20160408, end: 20200106
  55. CYMBALTA [Concomitant]
     Active Substance: DULOXETINE HYDROCHLORIDE
  56. COREG [Concomitant]
     Active Substance: CARVEDILOL
  57. ESCIN/LEVOTHYROXINE [Concomitant]
  58. VITAMIN B12 [Concomitant]
     Active Substance: CYANOCOBALAMIN
     Indication: Asthenia
     Dates: start: 2015
  59. REGLAN [Concomitant]
     Active Substance: METOCLOPRAMIDE HYDROCHLORIDE
  60. TRAMADOL HCL [Concomitant]
     Active Substance: TRAMADOL HYDROCHLORIDE
  61. XANAX [Concomitant]
     Active Substance: ALPRAZOLAM
  62. NORVASC [Concomitant]
     Active Substance: AMLODIPINE BESYLATE
  63. DOXAZOSIN [Concomitant]
     Active Substance: DOXAZOSIN MESYLATE
  64. DICLOFENAC [Concomitant]
     Active Substance: DICLOFENAC
     Indication: Analgesic intervention supportive therapy
     Dates: start: 20140812
  65. UNSPECIFIED INGREDIENT [Concomitant]
     Active Substance: UNSPECIFIED INGREDIENT
     Indication: Infection
     Dates: start: 20140812
  66. TRAMADOL [Concomitant]
     Active Substance: TRAMADOL\TRAMADOL HYDROCHLORIDE
     Indication: Pain
     Dates: start: 20140812
  67. CEFUROXIME [Concomitant]
     Active Substance: CEFUROXIME
     Indication: Infection
     Dates: start: 20140813
  68. ROPINIROLE [Concomitant]
     Active Substance: ROPINIROLE
     Indication: Parkinson^s disease
     Dates: start: 20141014
  69. SYNTHROID [Concomitant]
     Active Substance: LEVOTHYROXINE SODIUM
  70. VERAPAMIL [Concomitant]
     Active Substance: VERAPAMIL HYDROCHLORIDE
  71. MEDROL [Concomitant]
     Active Substance: METHYLPREDNISOLONE
  72. LOVAZA [Concomitant]
     Active Substance: OMEGA-3-ACID ETHYL ESTERS
  73. AUGMENTIN [Concomitant]
     Active Substance: AMOXICILLIN\CLAVULANATE POTASSIUM
  74. TESSALON [Concomitant]
     Active Substance: BENZONATATE
  75. TIZANIDINE [Concomitant]
     Active Substance: TIZANIDINE
  76. LOPID [Concomitant]
     Active Substance: GEMFIBROZIL
  77. PROPRANOLOL [Concomitant]
     Active Substance: PROPRANOLOL HYDROCHLORIDE
  78. MECLIZINE [Concomitant]
     Active Substance: MECLIZINE HYDROCHLORIDE
  79. FIORICET [Concomitant]
     Active Substance: ACETAMINOPHEN\BUTALBITAL\CAFFEINE
  80. ZOLOFT [Concomitant]
     Active Substance: SERTRALINE HYDROCHLORIDE
  81. ZITHROMAX [Concomitant]
     Active Substance: AZITHROMYCIN DIHYDRATE
     Indication: Infection
     Route: 065
     Dates: start: 20050406
  82. CEPHALEXIN [Concomitant]
     Active Substance: CEPHALEXIN
     Indication: Infection
     Route: 065
     Dates: start: 20140829
  83. DOXYCYCLINE [Concomitant]
     Active Substance: DOXYCYCLINE
     Indication: Infection
     Dates: start: 20191028
  84. AZITHROMYCIN [Concomitant]
     Active Substance: AZITHROMYCIN
     Indication: Infection
     Dates: start: 20140814
  85. CIPROFLOXACIN [Concomitant]
     Active Substance: CIPROFLOXACIN
     Indication: Infection
     Dates: start: 20191030
  86. TACROLIMUS [Concomitant]
     Active Substance: TACROLIMUS
     Indication: Liver transplant rejection
     Dates: start: 20170108, end: 20170330
  87. PEPCID [Concomitant]
     Active Substance: FAMOTIDINE
     Dates: start: 2008
  88. PEPCID AC [Concomitant]
     Active Substance: FAMOTIDINE
  89. ZANTAC [Concomitant]
     Active Substance: RANITIDINE HYDROCHLORIDE
     Route: 065
     Dates: start: 2006
  90. MILK OF MAGNESIA [Concomitant]
     Active Substance: MAGNESIUM HYDROXIDE
     Route: 065
     Dates: start: 2000, end: 2005

REACTIONS (4)
  - Chronic kidney disease [Not Recovered/Not Resolved]
  - Renal failure [Not Recovered/Not Resolved]
  - Nephrolithiasis [Not Recovered/Not Resolved]
  - Bladder disorder [Not Recovered/Not Resolved]
